FAERS Safety Report 6100696-2 (Version None)
Quarter: 2009Q1

REPORT INFORMATION
  Report Type: 
  Country: None (occurrence: None)
  Receive Date: 20090303
  Receipt Date: 20090220
  Transmission Date: 20090719
  Serious: Yes (Hospitalization)
  Sender: FDA-Public Use
  Company Number: FR-JNJFOC-20090205597

PATIENT
  Age: 17 Year
  Sex: Female
  Weight: 37 kg

DRUGS (4)
  1. EPITOMAX [Suspect]
     Indication: MIGRAINE PROPHYLAXIS
     Route: 048
  2. ADVIL [Concomitant]
  3. BIPROFENID [Concomitant]
  4. NORSET [Concomitant]

REACTIONS (5)
  - HEPATIC CALCIFICATION [None]
  - NEPHROLITHIASIS [None]
  - POLYDIPSIA [None]
  - POLYURIA [None]
  - WEIGHT DECREASED [None]
